FAERS Safety Report 5127774-9 (Version None)
Quarter: 2006Q4

REPORT INFORMATION
  Report Type: 
  Country: None (occurrence: None)
  Receive Date: 20061016
  Receipt Date: 20060320
  Transmission Date: 20070319
  Serious: Yes (Death)
  Sender: FDA-Public Use
  Company Number: JP-ROCHE-441682

PATIENT
  Age: 79 Year
  Sex: Male

DRUGS (1)
  1. ROCEPHIN [Suspect]
     Indication: INFECTION PROPHYLAXIS
     Route: 041
     Dates: start: 20060316, end: 20060316

REACTIONS (6)
  - ANAPHYLACTIC SHOCK [None]
  - CARDIO-RESPIRATORY ARREST [None]
  - EMPHYSEMA [None]
  - HYPOAESTHESIA [None]
  - PULMONARY OEDEMA [None]
  - RESPIRATORY FAILURE [None]
